FAERS Safety Report 9904406 (Version 2)
Quarter: 2014Q2

REPORT INFORMATION
  Report Type: Report from Study
  Country: DE (occurrence: DE)
  Receive Date: 20140218
  Receipt Date: 20140509
  Transmission Date: 20141212
  Serious: Yes (Hospitalization)
  Sender: FDA-Public Use
  Company Number: DE-ROCHE-1351549

PATIENT
  Age: 70 Year
  Sex: Female
  Weight: 69.7 kg

DRUGS (3)
  1. BEVACIZUMAB [Suspect]
     Indication: OVARIAN CANCER
     Dosage: MOST RECENT DOSE PRIOR TO SAE ON 23/JAN/2013
     Route: 042
     Dates: start: 20120131
  2. CARBOPLATIN [Suspect]
     Indication: OVARIAN CANCER
     Dosage: MOST RECENT DOSE PRIOR TO SAE ON 15/MAY/2012
     Route: 042
     Dates: start: 20120131
  3. PACLITAXEL [Suspect]
     Indication: OVARIAN CANCER
     Dosage: MOST RECENT DOSE PRIOR TO SAE ON 15/MAY/2012
     Route: 042
     Dates: start: 20120131

REACTIONS (1)
  - Retinal detachment [Recovered/Resolved]
